FAERS Safety Report 5293173-2 (Version None)
Quarter: 2007Q2

REPORT INFORMATION
  Report Type: 
  Country: None (occurrence: None)
  Receive Date: 20070411
  Receipt Date: 20070402
  Transmission Date: 20071010
  Serious: Yes (Other)
  Sender: FDA-Public Use
  Company Number: US-JNJFOC-20070400820

PATIENT
  Sex: Female
  Weight: 55.34 kg

DRUGS (6)
  1. DURAGESIC-100 [Suspect]
     Indication: BACK PAIN
     Route: 062
  2. PRILOSEC [Concomitant]
     Indication: GASTROOESOPHAGEAL REFLUX DISEASE
     Route: 048
  3. TOPROL-XL [Concomitant]
     Indication: BLOOD PRESSURE
     Route: 048
  4. BICARDIA [Concomitant]
     Indication: PALPITATIONS
     Route: 048
  5. NORCO [Concomitant]
     Indication: BREAKTHROUGH PAIN
     Route: 048
  6. ACTIGALL [Concomitant]
     Indication: GALLBLADDER DISORDER
     Route: 048

REACTIONS (12)
  - BACK PAIN [None]
  - BLOOD PRESSURE INCREASED [None]
  - GALLBLADDER DISORDER [None]
  - GASTROOESOPHAGEAL REFLUX DISEASE [None]
  - MUSCULAR WEAKNESS [None]
  - NAUSEA [None]
  - PALPITATIONS [None]
  - PARAESTHESIA ORAL [None]
  - SINUS DISORDER [None]
  - SYNCOPE [None]
  - THYROID NEOPLASM [None]
  - WRONG TECHNIQUE IN DRUG USAGE PROCESS [None]
